FAERS Safety Report 8613365 (Version 3)
Quarter: 2012Q4

REPORT INFORMATION
  Report Type: Report from Study
  Country: ES (occurrence: ES)
  Receive Date: 20120613
  Receipt Date: 20121119
  Transmission Date: 20130627
  Serious: Yes (Hospitalization)
  Sender: FDA-Public Use
  Company Number: ES-AMGEN-ESPCT2012036056

PATIENT
  Age: 61 Year
  Sex: Female

DRUGS (7)
  1. PANITUMUMAB [Suspect]
     Indication: ANAL CANCER
     Dosage: 6 mg/kg, q2wk
     Route: 042
     Dates: start: 20120430
  2. FLUOROURACIL [Concomitant]
     Dosage: 1000 mg/m2, q2wk
     Route: 042
     Dates: start: 20120430
  3. MITOMYCIN [Concomitant]
     Dosage: 10 mg/m2, UNK
     Route: 042
     Dates: start: 20120430
  4. SIMVASTATIN [Concomitant]
     Dosage: 20 mg, qd
     Route: 048
  5. ENALAPRIL [Concomitant]
     Dosage: 20 mg, qd
     Route: 048
  6. GLICLAZIDE [Concomitant]
     Dosage: 30 mg, qd
     Route: 048
  7. BISOPROLOL [Concomitant]
     Dosage: 10 mg, qd
     Route: 048

REACTIONS (1)
  - Febrile neutropenia [Recovered/Resolved]
